FAERS Safety Report 6946401-9 (Version None)
Quarter: 2010Q3

REPORT INFORMATION
  Report Type: 
  Country: None (occurrence: None)
  Receive Date: 20100827
  Receipt Date: 20100816
  Transmission Date: 20110219
  Serious: Yes (Hospitalization, Other)
  Sender: FDA-Public Use
  Company Number: AU-ELI_LILLY_AND_COMPANY-AU201008004335

PATIENT
  Sex: Female

DRUGS (1)
  1. FORTEO [Suspect]
     Indication: OSTEOPOROSIS
     Dosage: UNK, DAILY (1/D)
     Route: 065
     Dates: start: 20091128

REACTIONS (5)
  - ANGIOPLASTY [None]
  - DEMENTIA [None]
  - HOSPITALISATION [None]
  - POST PROCEDURAL COMPLICATION [None]
  - TOE AMPUTATION [None]
